FAERS Safety Report 6030708-6 (Version None)
Quarter: 2009Q1

REPORT INFORMATION
  Report Type: 
  Country: None (occurrence: None)
  Receive Date: 20090106
  Receipt Date: 20090106
  Transmission Date: 20090719
  Serious: Yes (Other)
  Sender: FDA-Public Use
  Company Number: None

PATIENT
  Age: 2 Year
  Sex: Female
  Weight: 13.6079 kg

DRUGS (1)
  1. CEFDINIR [Suspect]
     Indication: EAR INFECTION
     Dosage: 4 CC'S ONCE PER DAY PO
     Route: 048
     Dates: start: 20081230, end: 20081231

REACTIONS (6)
  - ABNORMAL BEHAVIOUR [None]
  - CRYING [None]
  - HYPOPHAGIA [None]
  - IRRITABILITY [None]
  - MIDDLE INSOMNIA [None]
  - SLEEP DISORDER [None]
